FAERS Safety Report 8387393-8 (Version None)
Quarter: 2012Q2

REPORT INFORMATION
  Report Type: 
  Country: None (occurrence: None)
  Receive Date: 20120525
  Receipt Date: 20120516
  Transmission Date: 20120825
  Serious: Yes (Hospitalization, Other)
  Sender: FDA-Public Use
  Company Number: US-ABBOTT-12P-163-0936322-00

PATIENT
  Sex: Female
  Weight: 52.664 kg

DRUGS (4)
  1. PREDNISONE TAB [Concomitant]
     Indication: CROHN'S DISEASE
  2. PERCOCET [Concomitant]
     Indication: PAIN
  3. HUMIRA [Suspect]
     Indication: CROHN'S DISEASE
     Dates: start: 20090513, end: 20120201
  4. PAXIL [Concomitant]
     Indication: DEPRESSION

REACTIONS (5)
  - OVARIAN CYST [None]
  - PAIN [None]
  - PYREXIA [None]
  - CROHN'S DISEASE [None]
  - ABDOMINAL PAIN [None]
